FAERS Safety Report 8951531 (Version 1)
Quarter: 2012Q4

REPORT INFORMATION
  Report Type: 
  Country: US (occurrence: US)
  Receive Date: 20121204
  Receipt Date: 20121204
  Transmission Date: 20130627
  Serious: No
  Sender: FDA-Public Use
  Company Number: US-AMGEN-USASP2012062963

PATIENT
  Age: 57 Year
  Sex: Female

DRUGS (3)
  1. ENBREL [Suspect]
     Indication: RHEUMATOID ARTHRITIS
     Dosage: 50 mg, qwk
     Dates: start: 20120703
  2. PREDNISONE [Concomitant]
     Dosage: 5.5 mg, qd repeated this x2
     Dates: start: 1999
  3. LEFLUNOMIDE [Concomitant]
     Dosage: 20 mg, UNK

REACTIONS (1)
  - Alopecia [Not Recovered/Not Resolved]
